FAERS Safety Report 19888366 (Version 1)
Quarter: 2021Q3

REPORT INFORMATION
  Report Type: Spontaneous
  Country: US (occurrence: US)
  Receive Date: 20210928
  Receipt Date: 20210928
  Transmission Date: 20211014
  Serious: Yes (Other)
  Sender: FDA-Public Use
  Company Number: US-DRREDDYS-SPO/USA/21/0141479

PATIENT
  Age: 17 Year
  Sex: Female

DRUGS (1)
  1. ZENATANE [Suspect]
     Active Substance: ISOTRETINOIN
     Indication: PRODUCT USED FOR UNKNOWN INDICATION
     Dosage: RMA ISSUE DATE: 3?AUGUST?2021 8:34:39 PM, 22?APRIL?2021 10:04:22 PM, 25?MAY?2021 11:41:06 PM, 27?JUL

REACTIONS (2)
  - Irritability [Unknown]
  - Feeling abnormal [Unknown]
